FAERS Safety Report 21497685 (Version 2)
Quarter: 2022Q4

REPORT INFORMATION
  Report Type: Spontaneous
  Country: JP (occurrence: JP)
  Receive Date: 20221024
  Receipt Date: 20221107
  Transmission Date: 20230113
  Serious: Yes (Hospitalization, Other)
  Sender: FDA-Public Use
  Company Number: JP-BEH-2022151032

PATIENT
  Age: 33 Year
  Sex: Female

DRUGS (4)
  1. ALBUMIN HUMAN [Suspect]
     Active Substance: ALBUMIN HUMAN
     Indication: Ovarian hyperstimulation syndrome
     Route: 065
  2. CABERGOLINE [Suspect]
     Active Substance: CABERGOLINE
     Route: 065
  3. RELUGOLIX [Suspect]
     Active Substance: RELUGOLIX
     Route: 065
  4. LETROZOLE [Suspect]
     Active Substance: LETROZOLE
     Route: 065

REACTIONS (4)
  - Abortion spontaneous [Unknown]
  - Maternal exposure during pregnancy [Unknown]
  - No adverse event [Unknown]
  - Off label use [Unknown]
